FAERS Safety Report 5003231-5 (Version None)
Quarter: 2006Q2

REPORT INFORMATION
  Report Type: 
  Country: None (occurrence: None)
  Receive Date: 20060512
  Receipt Date: 20060430
  Transmission Date: 20061013
  Serious: Yes (Other)
  Sender: FDA-Public Use
  Company Number: 2006058577

PATIENT
  Age: 63 Year
  Sex: Female
  Weight: 81.6475 kg

DRUGS (14)
  1. LYRICA [Suspect]
     Indication: DIABETIC NEUROPATHY
     Dosage: 150 MG (75 MG, 2 IN 1 D), ORAL
     Route: 048
     Dates: start: 20050101
  2. ACTOS [Suspect]
     Indication: DIABETES MELLITUS
  3. LASIX [Suspect]
     Indication: OEDEMA
  4. LISINOPRIL [Concomitant]
  5. PRANDIN [Concomitant]
  6. GLUCOPHAGE [Concomitant]
  7. LANTUS [Concomitant]
  8. HYZAAR [Concomitant]
  9. NORVASC [Concomitant]
  10. ASPIRIN [Concomitant]
  11. NIFEDIPINE [Concomitant]
  12. ZANTAC [Concomitant]
  13. CALTRATE (CALCIUM CARBONATE) [Concomitant]
  14. ALPRAZOLAM [Concomitant]

REACTIONS (10)
  - ANOREXIA [None]
  - BLOOD POTASSIUM DECREASED [None]
  - DEHYDRATION [None]
  - DIARRHOEA [None]
  - DRUG INTERACTION [None]
  - DRUG WITHDRAWAL SYNDROME [None]
  - FEELING ABNORMAL [None]
  - PARAESTHESIA [None]
  - PITTING OEDEMA [None]
  - THROAT TIGHTNESS [None]
